FAERS Safety Report 5135233-2 (Version None)
Quarter: 2006Q4

REPORT INFORMATION
  Report Type: 
  Country: None (occurrence: None)
  Receive Date: 20061026
  Receipt Date: 20061019
  Transmission Date: 20070319
  Serious: Yes (Hospitalization, Other)
  Sender: FDA-Public Use
  Company Number: US-JNJFOC-20040305687

PATIENT
  Sex: Female

DRUGS (9)
  1. DURAGESIC-100 [Suspect]
     Route: 062
  2. DURAGESIC-100 [Suspect]
     Route: 062
  3. DURAGESIC-100 [Suspect]
     Indication: PAIN
     Route: 062
  4. ATENOLOL [Concomitant]
  5. HYDROCHLOROTHIAZIDE [Concomitant]
  6. AMITRIPTYLINE HCL [Concomitant]
  7. PAXIL [Concomitant]
  8. MOBIC [Concomitant]
  9. MIGRAZONE [Concomitant]

REACTIONS (6)
  - DECUBITUS ULCER [None]
  - DYSGEUSIA [None]
  - FATIGUE [None]
  - HYPOAESTHESIA [None]
  - RESPIRATORY FAILURE [None]
  - SLEEP APNOEA SYNDROME [None]
